FAERS Safety Report 9551559 (Version 1)
Quarter: 2013Q3

REPORT INFORMATION
  Report Type: Report from Study
  Country: US (occurrence: US)
  Receive Date: 20130925
  Receipt Date: 20130925
  Transmission Date: 20140515
  Serious: Yes (Hospitalization, Other)
  Sender: FDA-Public Use
  Company Number: US-TEVA-434133USA

PATIENT
  Age: 44 Year
  Sex: Female

DRUGS (3)
  1. COPAXONE [Suspect]
     Indication: MULTIPLE SCLEROSIS
     Dates: start: 20091102
  2. METHYLPREDNISOLONE [Suspect]
  3. AZITHROMYCIN [Suspect]

REACTIONS (2)
  - Nervous system disorder [Unknown]
  - Chest pain [Unknown]
